FAERS Safety Report 8915178 (Version 1)
Quarter: 2012Q4

REPORT INFORMATION
  Report Type: 
  Country: JP (occurrence: JP)
  Receive Date: 20121119
  Receipt Date: 20121119
  Transmission Date: 20130627
  Serious: Yes (Hospitalization)
  Sender: FDA-Public Use
  Company Number: JP-ASTRAZENECA-2012SE86022

PATIENT

DRUGS (1)
  1. SYMBICORT TURBUHALER [Suspect]
     Dosage: UNKNOWN
     Route: 055

REACTIONS (1)
  - Paralysis [Unknown]
